FAERS Safety Report 4314443-8 (Version None)
Quarter: 2004Q1

REPORT INFORMATION
  Report Type: 
  Country: None (occurrence: None)
  Receive Date: 20040309
  Receipt Date: 20040226
  Transmission Date: 20041129
  Serious: Yes (Death, Other)
  Sender: FDA-Public Use
  Company Number: PL-BRISTOL-MYERS SQUIBB COMPANY-12517652

PATIENT
  Age: 44 Year
  Sex: Female

DRUGS (12)
  1. AMIKACIN SULFATE [Suspect]
     Indication: PNEUMONIA
  2. ACYCLOVIR [Suspect]
     Indication: PNEUMONIA
  3. PIPERACILLIN [Suspect]
     Indication: PNEUMONIA
  4. FLUCONAZOLE [Suspect]
  5. TEICOPLANIN [Suspect]
     Indication: STAPHYLOCOCCAL INFECTION
  6. TEICOPLANIN [Suspect]
     Indication: CANDIDIASIS
  7. AMPHOTERICIN B [Suspect]
     Indication: STAPHYLOCOCCAL INFECTION
  8. AMPHOTERICIN B [Suspect]
     Indication: CANDIDIASIS
  9. CYCLOPHOSPHAMIDE [Concomitant]
     Indication: LYMPHOMA
  10. DOXORUBICIN HCL [Concomitant]
     Indication: LYMPHOMA
  11. VINCRISTINE [Concomitant]
     Indication: LYMPHOMA
  12. PREDNISONE [Concomitant]
     Indication: LYMPHOMA

REACTIONS (4)
  - B-CELL LYMPHOMA [None]
  - CANDIDIASIS [None]
  - CARDIAC ARREST [None]
  - STAPHYLOCOCCAL INFECTION [None]
